FAERS Safety Report 19447132 (Version 2)
Quarter: 2021Q3

REPORT INFORMATION
  Report Type: Spontaneous
  Country: US (occurrence: US)
  Receive Date: 20210622
  Receipt Date: 20210921
  Transmission Date: 20211014
  Serious: Yes (Other)
  Sender: FDA-Public Use
  Company Number: US-BAYER-2021-161186

PATIENT
  Age: 23 Year
  Sex: Female
  Weight: 68.93 kg

DRUGS (1)
  1. MIRENA [Suspect]
     Active Substance: LEVONORGESTREL
     Indication: CONTRACEPTION
     Dosage: 20  ?G PER DAY, CONTINUOUSLY
     Route: 015
     Dates: start: 20200720, end: 20210713

REACTIONS (4)
  - Sleep apnoea syndrome [None]
  - Device dislocation [Not Recovered/Not Resolved]
  - Anxiety [Recovering/Resolving]
  - Abdominal pain lower [None]

NARRATIVE: CASE EVENT DATE: 20210614
